FAERS Safety Report 19354720 (Version 2)
Quarter: 2021Q3

REPORT INFORMATION
  Report Type: Spontaneous
  Country: US (occurrence: US)
  Receive Date: 20210531
  Receipt Date: 20210920
  Transmission Date: 20211014
  Serious: Yes (Death, Other)
  Sender: FDA-Public Use
  Company Number: US-PURDUE-USA-2020-0157852

PATIENT
  Sex: Male

DRUGS (1)
  1. OXYCONTIN [Suspect]
     Active Substance: OXYCODONE HYDROCHLORIDE
     Indication: COLORECTAL CANCER
     Dosage: UNK
     Route: 048

REACTIONS (7)
  - Drug dependence [Unknown]
  - Somnolence [Unknown]
  - Irritability [Unknown]
  - Mood swings [Unknown]
  - Thinking abnormal [Unknown]
  - Malignant neoplasm progression [Fatal]
  - Listless [Unknown]

NARRATIVE: CASE EVENT DATE: 200806
